FAERS Safety Report 8336142-8 (Version None)
Quarter: 2012Q1

REPORT INFORMATION
  Report Type: 
  Country: None (occurrence: None)
  Receive Date: 20120329
  Receipt Date: 20090708
  Transmission Date: 20120608
  Serious: Yes (Other)
  Sender: FDA-Public Use
  Company Number: PHEH2009US07254

PATIENT
  Sex: Female

DRUGS (2)
  1. MULTIVITAMINS (ASCORBIC ACID, ERGOCALCIFEROL, FOLIC ACID, NICOTINAMIDE [Concomitant]
  2. EXELON [Suspect]
     Dosage: 4.6

REACTIONS (12)
  - HAEMATOCHEZIA [None]
  - DIZZINESS [None]
  - HALLUCINATION [None]
  - CHEST PAIN [None]
  - DECREASED APPETITE [None]
  - WEIGHT DECREASED [None]
  - MUSCULOSKELETAL CHEST PAIN [None]
  - HYPERTENSION [None]
  - MEMORY IMPAIRMENT [None]
  - HEADACHE [None]
  - APPLICATION SITE PRURITUS [None]
  - APPLICATION SITE ERYTHEMA [None]
